FAERS Safety Report 7656824-0 (Version None)
Quarter: 2011Q3

REPORT INFORMATION
  Report Type: 
  Country: None (occurrence: None)
  Receive Date: 20110804
  Receipt Date: 20110406
  Transmission Date: 20111222
  Serious: No
  Sender: FDA-Public Use
  Company Number: US-BAYER-2011-030576

PATIENT
  Age: 73 Year
  Sex: Male

DRUGS (2)
  1. CIPROFLOXACIN HCL [Suspect]
     Indication: DIVERTICULITIS
     Dosage: UNK
     Dates: start: 20110401
  2. FLAGYL [Concomitant]

REACTIONS (1)
  - PAIN IN EXTREMITY [None]
